FAERS Safety Report 5254566-2 (Version None)
Quarter: 2007Q1

REPORT INFORMATION
  Report Type: 
  Country: None (occurrence: None)
  Receive Date: 20070302
  Receipt Date: 20070222
  Transmission Date: 20070707
  Serious: Yes (Hospitalization, Disabling)
  Sender: FDA-Public Use
  Company Number: US-MERCK-0610USA13976

PATIENT
  Age: 77 Year
  Sex: Female

DRUGS (2)
  1. FOSAMAX [Suspect]
     Indication: OSTEOPOROSIS
     Route: 048
     Dates: start: 20020128, end: 20040603
  2. FOSAMAX [Suspect]
     Route: 048
     Dates: start: 19991212, end: 20011204

REACTIONS (10)
  - ANXIETY [None]
  - ARTHROPATHY [None]
  - ASTHMA [None]
  - CYST [None]
  - FEMUR FRACTURE [None]
  - HYPERTENSION [None]
  - INFLUENZA [None]
  - NASOPHARYNGITIS [None]
  - OSTEONECROSIS [None]
  - PERIODONTAL DISEASE [None]
